FAERS Safety Report 10064459 (Version 1)
Quarter: 2014Q2

REPORT INFORMATION
  Report Type: Spontaneous
  Country: US (occurrence: None)
  Receive Date: 20140407
  Receipt Date: 20140407
  Transmission Date: 20141212
  Serious: Yes (Hospitalization)
  Sender: FDA-Public Use
  Company Number: None

PATIENT
  Sex: Female
  Weight: 58.9 kg

DRUGS (2)
  1. CARBOPLATIN [Suspect]
  2. PACLITAXEL [Suspect]

REACTIONS (7)
  - Abdominal pain [None]
  - Renal failure acute [None]
  - Hypokalaemia [None]
  - Dehydration [None]
  - Diarrhoea [None]
  - Vomiting [None]
  - Nausea [None]
